FAERS Safety Report 20737386 (Version 1)
Quarter: 2022Q2

REPORT INFORMATION
  Report Type: Spontaneous
  Country: US (occurrence: None)
  Receive Date: 20220421
  Receipt Date: 20220421
  Transmission Date: 20220721
  Serious: No
  Sender: FDA-Public Use
  Company Number: 2022A143187

PATIENT

DRUGS (2)
  1. CRESTOR [Suspect]
     Active Substance: ROSUVASTATIN CALCIUM
     Dosage: 20.0MG UNKNOWN
     Route: 048
  2. ROSUVASTATIN CALCIUM [Suspect]
     Active Substance: ROSUVASTATIN CALCIUM
     Dosage: UNKNOWN POSOLOGY
     Route: 048

REACTIONS (6)
  - Pain [Unknown]
  - Adverse drug reaction [Unknown]
  - Blood calcium increased [Not Recovered/Not Resolved]
  - Parathyroid disorder [Unknown]
  - Scar [Unknown]
  - Nervousness [Unknown]
